FAERS Safety Report 6208737-9 (Version None)
Quarter: 2009Q2

REPORT INFORMATION
  Report Type: 
  Country: None (occurrence: None)
  Receive Date: 20090529
  Receipt Date: 20090525
  Transmission Date: 20091009
  Serious: Yes (Other)
  Sender: FDA-Public Use
  Company Number: AU-BRISTOL-MYERS SQUIBB COMPANY-14451363

PATIENT

DRUGS (1)
  1. ETOPOSIDE [Suspect]

REACTIONS (1)
  - MEDICATION ERROR [None]
